FAERS Safety Report 7782107-4 (Version None)
Quarter: 2011Q3

REPORT INFORMATION
  Report Type: 
  Country: None (occurrence: None)
  Receive Date: 20110927
  Receipt Date: 20110915
  Transmission Date: 20111222
  Serious: Yes (Hospitalization, Other)
  Sender: FDA-Public Use
  Company Number: US-ELI_LILLY_AND_COMPANY-US200710000052

PATIENT
  Sex: Female
  Weight: 190.48 kg

DRUGS (22)
  1. BYETTA [Suspect]
     Dosage: 10 UG, 2/D
     Route: 058
     Dates: start: 20070801
  2. BYETTA [Suspect]
     Dosage: 10 UG, BID
  3. GLIMEPIRIDE [Concomitant]
     Indication: TYPE 2 DIABETES MELLITUS
     Dosage: 4 MG, 2/D
     Route: 048
  4. METOPROLOL TARTRATE [Concomitant]
     Dosage: 25 MBQ, DAILY (1/D)
     Route: 048
  5. SEREVENT [Concomitant]
     Indication: ASTHMA
  6. BYETTA [Suspect]
     Dosage: 10 UG, 2/D
     Route: 058
  7. FEXOFENADINE [Concomitant]
     Dosage: UNK, DAILY (1/D)
     Route: 048
  8. PROTONIX [Concomitant]
     Dosage: 40 MG, 2/D
     Route: 048
  9. METFORMIN HCL [Concomitant]
     Indication: TYPE 2 DIABETES MELLITUS
     Dosage: 1000 MG, 2/D
     Route: 048
  10. ASPIRIN [Concomitant]
     Dosage: 81 MG, DAILY (1/D)
     Route: 048
  11. BYETTA [Suspect]
     Dosage: 10 UG, TID
  12. GLIMEPIRIDE [Concomitant]
     Dosage: 8 MG, UNK
     Route: 048
     Dates: start: 20110901
  13. AMLODIPINE [Concomitant]
     Dosage: 10 MG, DAILY (1/D)
     Route: 048
  14. VITAMIN D [Concomitant]
     Dosage: UNK, DAILY (1/D)
     Route: 048
  15. BYETTA [Suspect]
     Indication: TYPE 2 DIABETES MELLITUS
     Dosage: 5 UG, 2/D
     Route: 058
     Dates: start: 20070701, end: 20070801
  16. CALCIUM CARBONATE + VITAMIN D [Concomitant]
     Dosage: UNK, DAILY (1/D)
     Route: 048
  17. LISINOPRIL [Concomitant]
     Dosage: 5 MG, DAILY (1/D)
     Route: 048
  18. BYETTA [Suspect]
     Dosage: 10 UG, 2/D
     Route: 058
     Dates: start: 20070801
  19. QVAR 40 [Concomitant]
     Indication: ASTHMA
  20. MELOXICAM [Concomitant]
     Dosage: 15 MG, DAILY (1/D)
     Route: 048
  21. SINGULAIR [Concomitant]
     Indication: ASTHMA
     Dosage: UNK, DAILY (1/D)
     Route: 048
  22. WARFARIN SODIUM [Concomitant]
     Dosage: UNK, DAILY (1/D)
     Route: 048

REACTIONS (11)
  - ASTHMA [None]
  - CELLULITIS [None]
  - ANAPHYLACTIC REACTION [None]
  - RETCHING [None]
  - BLOOD GLUCOSE INCREASED [None]
  - NOSOCOMIAL INFECTION [None]
  - HOSPITALISATION [None]
  - NAUSEA [None]
  - DRUG INEFFECTIVE [None]
  - KIDNEY INFECTION [None]
  - SEPSIS [None]
